FAERS Safety Report 5113502-X (Version None)
Quarter: 2006Q3

REPORT INFORMATION
  Report Type: 
  Country: None (occurrence: None)
  Receive Date: 20060921
  Receipt Date: 20060921
  Transmission Date: 20061208
  Serious: Yes (Hospitalization)
  Sender: FDA-Public Use
  Company Number: None

PATIENT
  Age: 82 Year
  Sex: Male
  Weight: 90.7 kg

DRUGS (8)
  1. ZITHROMAX [Suspect]
  2. FORMOTEROL FUMARATE [Concomitant]
  3. MONTELUKAST NA [Concomitant]
  4. ALBUTEROL 0.083% INHL SOLN [Concomitant]
  5. IPRATROPIUM BROMIDE 0.02% INH SOLN 2.5ML [Concomitant]
  6. METHYLPREDNISOLONE [Concomitant]
  7. FUROSEMIDE [Concomitant]
  8. POTASSIUM CHLORIDE [Concomitant]

REACTIONS (2)
  - SWELLING [None]
  - WHEEZING [None]
